FAERS Safety Report 4482394-4 (Version None)
Quarter: 2004Q4

REPORT INFORMATION
  Report Type: 
  Country: None (occurrence: None)
  Receive Date: 20041022
  Receipt Date: 20040325
  Transmission Date: 20050328
  Serious: No
  Sender: FDA-Public Use
  Company Number: US-BRISTOL-MYERS SQUIBB COMPANY-12542486

PATIENT
  Age: 50 Year
  Sex: Female
  Weight: 48 kg

DRUGS (3)
  1. BUSPAR [Suspect]
     Indication: ANXIETY
     Dosage: DOSE INCREASED TO 20MG/DAY ,THEN 30MG/DAY, AND BACK DOWN TO 20MG AFTER EVENT
     Route: 048
  2. KEFLEX [Suspect]
     Indication: LOCALISED INFECTION
     Route: 048
     Dates: start: 20040319
  3. WELLBUTRIN [Suspect]
     Route: 048
     Dates: start: 20040319

REACTIONS (2)
  - PARAESTHESIA [None]
  - SWOLLEN TONGUE [None]
